FAERS Safety Report 5003376-X (Version None)
Quarter: 2006Q1

REPORT INFORMATION
  Report Type: 
  Country: None (occurrence: None)
  Receive Date: 20060317
  Receipt Date: 20050804
  Transmission Date: 20060701
  Serious: Yes (Other)
  Sender: FDA-Public Use
  Company Number: 200515600US

PATIENT
  Sex: Male
  Weight: 100 kg

DRUGS (1)
  1. CLOMID [Suspect]
     Dosage: 50 MG QD PO
     Route: 048

REACTIONS (1)
  - CONVULSION [None]
